FAERS Safety Report 14261620 (Version 3)
Quarter: 2018Q2

REPORT INFORMATION
  Report Type: Report from Study
  Country: DE (occurrence: DE)
  Receive Date: 20171208
  Receipt Date: 20180518
  Transmission Date: 20180711
  Serious: Yes (Hospitalization)
  Sender: FDA-Public Use
  Company Number: DE-ROCHE-2031792

PATIENT
  Age: 78 Year
  Sex: Male
  Weight: 80 kg

DRUGS (7)
  1. COBIMETINIB. [Suspect]
     Active Substance: COBIMETINIB
     Indication: MALIGNANT MELANOMA
     Dosage: DATE OF LAST DOSE PRIOR TO BOTH SAES: 23/NOV/2017?INTERRUPTED ON 24/NOV/2017 IN RESPONSE TO BOTH SAE
     Route: 048
     Dates: start: 20170629
  2. ATEZOLIZUMAB. [Suspect]
     Active Substance: ATEZOLIZUMAB
     Indication: MALIGNANT MELANOMA
     Dosage: DATE OF LAST DOSE PRIOR TO BOTH SAES: 07/NOV/2017
     Route: 042
     Dates: start: 20170927
  3. ASPIRIN. [Concomitant]
     Active Substance: ASPIRIN
     Route: 065
     Dates: start: 20130101
  4. VEMURAFENIB. [Suspect]
     Active Substance: VEMURAFENIB
     Indication: MALIGNANT MELANOMA
     Dosage: DATE OF LAST DOSE PRIOR TO BOTH SAES: 23/NOV/2017?INTERRUPTED IN RESPONSE TO BOTH SAES
     Route: 048
     Dates: start: 20170629, end: 20171124
  5. MARCUMAR [Concomitant]
     Active Substance: PHENPROCOUMON
     Route: 065
     Dates: start: 20171006, end: 20171124
  6. KONAKION [Concomitant]
     Active Substance: PHYTONADIONE
     Route: 065
     Dates: start: 20171124, end: 20171124
  7. TRANEXAMIC ACID. [Concomitant]
     Active Substance: TRANEXAMIC ACID
     Route: 065
     Dates: start: 20171124, end: 20171124

REACTIONS (2)
  - Gastric haemorrhage [Not Recovered/Not Resolved]
  - Pulmonary haemorrhage [Recovered/Resolved]

NARRATIVE: CASE EVENT DATE: 20171124
